FAERS Safety Report 19501991 (Version 1)
Quarter: 2021Q3

REPORT INFORMATION
  Report Type: Spontaneous
  Country: US (occurrence: US)
  Receive Date: 20210707
  Receipt Date: 20210707
  Transmission Date: 20211014
  Serious: No
  Sender: FDA-Public Use
  Company Number: None

PATIENT
  Age: 62 Year
  Sex: Female
  Weight: 65.25 kg

DRUGS (12)
  1. JARDIANCE [Concomitant]
     Active Substance: EMPAGLIFLOZIN
  2. EFFEXOR XR [Concomitant]
     Active Substance: VENLAFAXINE HYDROCHLORIDE
  3. FISH OIL [Concomitant]
     Active Substance: FISH OIL
  4. RAMIPRIL. [Concomitant]
     Active Substance: RAMIPRIL
  5. CRESTOR [Concomitant]
     Active Substance: ROSUVASTATIN CALCIUM
  6. TRULICITY [Concomitant]
     Active Substance: DULAGLUTIDE
  7. VITAMIN D [Concomitant]
     Active Substance: VITAMIN D NOS
  8. VERAPAMIL [Concomitant]
     Active Substance: VERAPAMIL HYDROCHLORIDE
  9. JANUVIA [Concomitant]
     Active Substance: SITAGLIPTIN PHOSPHATE
  10. SINGULAIR [Concomitant]
     Active Substance: MONTELUKAST SODIUM
  11. TRULICITY [Suspect]
     Active Substance: DULAGLUTIDE
     Indication: TYPE 2 DIABETES MELLITUS
     Dosage: ?          QUANTITY:1 INJECTION(S);OTHER FREQUENCY:ONCE A WEEK;OTHER ROUTE:SUBQ INJECTION?
     Dates: start: 20210120
  12. CALCIUM [Concomitant]
     Active Substance: CALCIUM

REACTIONS (5)
  - Injection site pruritus [None]
  - Injection site bruising [None]
  - Injection site erythema [None]
  - Injection site urticaria [None]
  - Injection site swelling [None]

NARRATIVE: CASE EVENT DATE: 20210704
